FAERS Safety Report 19787170 (Version 2)
Quarter: 2021Q3

REPORT INFORMATION
  Report Type: Spontaneous
  Country: US (occurrence: US)
  Receive Date: 20210903
  Receipt Date: 20210913
  Transmission Date: 20211014
  Serious: No
  Sender: FDA-Public Use
  Company Number: US-FRESENIUS KABI-FK202109391

PATIENT
  Age: 50 Year
  Sex: Female
  Weight: 82.3 kg

DRUGS (2)
  1. NESACAINE MPF [Suspect]
     Active Substance: CHLOROPROCAINE HYDROCHLORIDE
     Indication: SPINAL ANAESTHESIA
     Dates: start: 20210818, end: 20210818
  2. PROGESTERONE/ESTROGEN NOS [Concomitant]
     Indication: HORMONE REPLACEMENT THERAPY
     Dosage: UNKNOWN
     Route: 065

REACTIONS (3)
  - Intentional product use issue [Unknown]
  - Procedural pain [Recovered/Resolved]
  - Therapeutic product effect decreased [Recovered/Resolved]

NARRATIVE: CASE EVENT DATE: 20210818
